FAERS Safety Report 6676416-X (Version None)
Quarter: 2010Q2

REPORT INFORMATION
  Report Type: 
  Country: None (occurrence: None)
  Receive Date: 20100412
  Receipt Date: 20100331
  Transmission Date: 20101027
  Serious: Yes (Other)
  Sender: FDA-Public Use
  Company Number: PHHY2010BR19735

PATIENT
  Sex: Male

DRUGS (2)
  1. EXFORGE [Suspect]
     Dosage: 320/10 MG
  2. GALVUS MET [Suspect]
     Dosage: 850/50 MG

REACTIONS (2)
  - DIABETIC COMPLICATION [None]
  - RENAL DISORDER [None]
